FAERS Safety Report 6639694-9 (Version None)
Quarter: 2010Q1

REPORT INFORMATION
  Report Type: 
  Country: None (occurrence: None)
  Receive Date: 20100318
  Receipt Date: 20100310
  Transmission Date: 20100710
  Serious: Yes (Hospitalization, Other)
  Sender: FDA-Public Use
  Company Number: JP-BAYER-200812457BYL

PATIENT
  Age: 75 Year
  Sex: Male

DRUGS (10)
  1. NEXAVAR [Suspect]
     Indication: RENAL CELL CARCINOMA
     Dosage: UNIT DOSE: 200 MG
     Route: 048
     Dates: start: 20080516, end: 20080710
  2. NEXAVAR [Suspect]
     Dosage: TOTAL DAILY DOSE: 800 MG  UNIT DOSE: 200 MG
     Route: 048
     Dates: start: 20080711, end: 20080725
  3. NEXAVAR [Suspect]
     Dosage: UNIT DOSE: 200 MG
     Route: 048
     Dates: start: 20080823, end: 20080919
  4. CANDESARTAN CILEXETIL [Concomitant]
     Dosage: TOTAL DAILY DOSE: 4 MG  UNIT DOSE: 4 MG
     Route: 048
     Dates: start: 20080516
  5. PERDIPINE [Concomitant]
     Route: 048
     Dates: start: 20080516
  6. MERCKMEZIN [Concomitant]
     Route: 048
     Dates: start: 20080516
  7. OPYRIN [Concomitant]
     Dosage: UNIT DOSE: 125 MG
     Route: 048
     Dates: start: 20080516
  8. URINORM [Concomitant]
     Dosage: TOTAL DAILY DOSE: 25 MG  UNIT DOSE: 25 MG
     Route: 048
     Dates: start: 20080516
  9. FERROMIA [Concomitant]
     Route: 048
     Dates: start: 20080516
  10. ESPO SUBCUTANEOUS INJECTION [Concomitant]
     Dosage: UNIT DOSE: 12000 IU
     Route: 058
     Dates: start: 20080516

REACTIONS (4)
  - HEPATIC FUNCTION ABNORMAL [None]
  - LIPASE INCREASED [None]
  - PALMAR-PLANTAR ERYTHRODYSAESTHESIA SYNDROME [None]
  - STOMATITIS [None]
